FAERS Safety Report 16106873 (Version 1)
Quarter: 2019Q1

REPORT INFORMATION
  Report Type: Spontaneous
  Country: US (occurrence: US)
  Receive Date: 20190322
  Receipt Date: 20190322
  Transmission Date: 20190418
  Serious: No
  Sender: FDA-Public Use
  Company Number: US-SUNOVION-2019SUN001155

PATIENT
  Sex: Female

DRUGS (2)
  1. LUNESTA [Suspect]
     Active Substance: ESZOPICLONE
     Dosage: 2 MG
     Route: 048
  2. LUNESTA [Suspect]
     Active Substance: ESZOPICLONE
     Dosage: CUTTING 2 MG TABLET IN 4THS
     Route: 048

REACTIONS (7)
  - Drug effect increased [Unknown]
  - Underdose [Unknown]
  - Wrong technique in product usage process [Unknown]
  - Alopecia [Unknown]
  - Somnolence [Unknown]
  - Dizziness [Unknown]
  - Lethargy [Unknown]
